FAERS Safety Report 5141780-X (Version None)
Quarter: 2006Q4

REPORT INFORMATION
  Report Type: 
  Country: None (occurrence: None)
  Receive Date: 20061027
  Receipt Date: 20061016
  Transmission Date: 20070319
  Serious: Yes (Hospitalization, Other)
  Sender: FDA-Public Use
  Company Number: JP200610001959

PATIENT
  Age: 80 Year
  Sex: Female

DRUGS (2)
  1. GEMZAR [Suspect]
     Indication: PANCREATIC CARCINOMA STAGE IV
     Dosage: INTRAVENOUS
     Route: 042
  2. MITOMYCIN [Concomitant]

REACTIONS (1)
  - BILE DUCT OBSTRUCTION [None]
